FAERS Safety Report 14635922 (Version 2)
Quarter: 2019Q2

REPORT INFORMATION
  Report Type: Spontaneous
  Country: US (occurrence: US)
  Receive Date: 20180314
  Receipt Date: 20190506
  Transmission Date: 20190711
  Serious: No
  Sender: FDA-Public Use
  Company Number: US-PFIZER INC-2018105326

PATIENT
  Age: 64 Year
  Sex: Female

DRUGS (1)
  1. IBRANCE [Suspect]
     Active Substance: PALBOCICLIB
     Dosage: 125 MG, UNK

REACTIONS (7)
  - Pyrexia [Unknown]
  - Depression [Unknown]
  - Thinking abnormal [Unknown]
  - Aggression [Unknown]
  - Vomiting [Unknown]
  - Psychiatric symptom [Unknown]
  - Diarrhoea [Unknown]
